FAERS Safety Report 20137242 (Version 1)
Quarter: 2021Q4

REPORT INFORMATION
  Report Type: Spontaneous
  Country: US (occurrence: US)
  Receive Date: 20211201
  Receipt Date: 20211201
  Transmission Date: 20220303
  Serious: No
  Sender: FDA-Public Use
  Company Number: US-PERRIGO-21US030092

PATIENT
  Age: 82 Year
  Sex: Female
  Weight: 73.016 kg

DRUGS (5)
  1. DICLOFENAC SODIUM [Suspect]
     Active Substance: DICLOFENAC SODIUM
     Indication: Musculoskeletal pain
     Dosage: 4 G, QID
     Route: 061
     Dates: start: 20211015, end: 20211018
  2. UNSPECIFIED INGREDIENT [Concomitant]
     Active Substance: UNSPECIFIED INGREDIENT
     Indication: Hypertension
     Dosage: UNK
     Route: 065
  3. UNSPECIFIED INGREDIENT [Concomitant]
     Active Substance: UNSPECIFIED INGREDIENT
     Indication: Blood cholesterol increased
     Dosage: UNK
     Route: 065
  4. UNSPECIFIED INGREDIENT [Concomitant]
     Active Substance: UNSPECIFIED INGREDIENT
     Indication: Palpitations
     Dosage: UNK
     Route: 065
  5. CALCIUM [Concomitant]
     Active Substance: CALCIUM
     Indication: Supplementation therapy
     Dosage: 120 MG, QAM
     Route: 065

REACTIONS (3)
  - Hypoaesthesia [Not Recovered/Not Resolved]
  - Product administered at inappropriate site [Recovered/Resolved]
  - Off label use [Unknown]

NARRATIVE: CASE EVENT DATE: 20211015
